FAERS Safety Report 4396768-3 (Version None)
Quarter: 2004Q3

REPORT INFORMATION
  Report Type: 
  Country: None (occurrence: None)
  Receive Date: 20040714
  Receipt Date: 20040403
  Transmission Date: 20050211
  Serious: Yes (Disabling)
  Sender: FDA-Public Use
  Company Number: 200410720DE

PATIENT
  Age: 49 Year
  Sex: Female
  Weight: 68 kg

DRUGS (4)
  1. RIFATER [Suspect]
     Indication: LYMPH NODE TUBERCULOSIS
     Route: 048
     Dates: start: 20010224, end: 20010527
  2. RIFAMPIN AND ISONIAZID [Suspect]
     Indication: LYMPH NODE TUBERCULOSIS
     Route: 048
     Dates: start: 20010528, end: 20011127
  3. MYAMBUTOL [Concomitant]
     Indication: LYMPH NODE TUBERCULOSIS
     Route: 048
     Dates: start: 20010224, end: 20010527
  4. VITAMIN B6 [Concomitant]
     Route: 048
     Dates: start: 20010224, end: 20011127

REACTIONS (5)
  - ARTHRALGIA [None]
  - BLOOD URIC ACID INCREASED [None]
  - FATIGUE [None]
  - LEUKOPENIA [None]
  - LYMPH NODE TUBERCULOSIS [None]
